FAERS Safety Report 11328731 (Version 1)
Quarter: 2015Q3

REPORT INFORMATION
  Report Type: Spontaneous
  Country: AU (occurrence: AU)
  Receive Date: 20150731
  Receipt Date: 20150731
  Transmission Date: 20151125
  Serious: Yes (Other)
  Sender: FDA-Public Use
  Company Number: AU-BAXTER-2015BAX041051

PATIENT
  Age: 76 Year
  Sex: Male

DRUGS (1)
  1. TISSEEL VH [Suspect]
     Active Substance: FIBRINOGEN HUMAN\THROMBIN HUMAN
     Indication: TRANSPLANT
     Route: 061

REACTIONS (2)
  - Graft complication [Recovered/Resolved]
  - Post procedural inflammation [Recovered/Resolved]
